FAERS Safety Report 7058973-7 (Version None)
Quarter: 2010Q4

REPORT INFORMATION
  Report Type: 
  Country: None (occurrence: None)
  Receive Date: 20101025
  Receipt Date: 20101013
  Transmission Date: 20110411
  Serious: Yes (Hospitalization)
  Sender: FDA-Public Use
  Company Number: NL-BIOGENIDEC-2010BI031594

PATIENT
  Age: 54 Year
  Sex: Female

DRUGS (8)
  1. TYSABRI [Suspect]
     Indication: MULTIPLE SCLEROSIS
     Route: 042
     Dates: start: 20070301, end: 20100902
  2. DIOVAN [Concomitant]
  3. OMNIC [Concomitant]
  4. BACLOFEN [Concomitant]
  5. ZYVOX [Concomitant]
  6. MOVICOLON [Concomitant]
  7. PANTOPRAZOLE SODIUM [Concomitant]
  8. CIPROFLOXACIN [Concomitant]
     Indication: MENINGITIS

REACTIONS (6)
  - HYPERTENSION [None]
  - ILL-DEFINED DISORDER [None]
  - INTRACRANIAL ANEURYSM [None]
  - MENINGITIS [None]
  - PNEUMONIA [None]
  - SUBARACHNOID HAEMORRHAGE [None]
